FAERS Safety Report 20622606 (Version 3)
Quarter: 2022Q3

REPORT INFORMATION
  Report Type: Report from Study
  Country: US (occurrence: US)
  Receive Date: 20220322
  Receipt Date: 20220720
  Transmission Date: 20221027
  Serious: Yes (Other)
  Sender: FDA-Public Use
  Company Number: US-NOVARTISTESTPH-NVSC2022US062300

PATIENT
  Sex: Male

DRUGS (4)
  1. COSENTYX [Suspect]
     Active Substance: SECUKINUMAB
     Indication: Psoriatic arthropathy
     Dosage: 150 MG, QW (ONCE A WEEK FOR 5 WEEKS)
     Route: 058
  2. COSENTYX [Suspect]
     Active Substance: SECUKINUMAB
     Dosage: 150 MG, QMO (ONCE EVERY 4 WEEKS)
     Route: 058
  3. COSENTYX [Suspect]
     Active Substance: SECUKINUMAB
     Dosage: 300 MG, QW (ONCE A WEEK FOR 5 WEEKS)
     Route: 058
  4. COSENTYX [Suspect]
     Active Substance: SECUKINUMAB
     Dosage: 300 MG, QMO (ONCE A WEEK FOR 5 WEEKS THEN ONCE EVERY 4 WEEKS)
     Route: 058

REACTIONS (4)
  - Psoriatic arthropathy [Unknown]
  - Acne [Unknown]
  - Psoriasis [Unknown]
  - Drug ineffective [Unknown]
